FAERS Safety Report 24079564 (Version 3)
Quarter: 2024Q3

REPORT INFORMATION
  Report Type: Spontaneous
  Country: CO (occurrence: CO)
  Receive Date: 20240711
  Receipt Date: 20240912
  Transmission Date: 20241017
  Serious: Yes (Other)
  Sender: LUNDBECK
  Company Number: CO-SA-SAC20240627000042

PATIENT

DRUGS (7)
  1. CLOBAZAM [Suspect]
     Active Substance: CLOBAZAM
     Indication: Lennox-Gastaut syndrome
     Dosage: 40 MG, QD, (10MG IN THE MORNING, 20MG IN THE AFTERNOON, AND 10MG AT NIGHT)
     Route: 048
     Dates: start: 2012, end: 2023
  2. CLOBAZAM [Suspect]
     Active Substance: CLOBAZAM
     Indication: Epilepsy
  3. TOPIRAMATE [Concomitant]
     Active Substance: TOPIRAMATE
     Indication: Product used for unknown indication
     Dosage: 4 DF, QD, (2 TABLETS IN THE MORNING, 1 TABLET IN THE AFTERNOON, AND 1 TABLET IN THE EVENING)
     Route: 065
  4. LAMICTAL [Concomitant]
     Active Substance: LAMOTRIGINE
     Indication: Product used for unknown indication
     Dosage: 4 DF, QD, (1 TABLET IN THE MORNING, 1 TABLET IN THE AFTERNOON, AND 2 IN THE EVENING)
     Route: 065
  5. CLOBAZAM [Concomitant]
     Active Substance: CLOBAZAM
     Indication: Lennox-Gastaut syndrome
     Dosage: 4 DF, QD, (10MG IN THE MORNING, 20MG IN THE AFTERNOON, AND 10MG AT NIGHT)
     Route: 065
  6. CLOBAZAM [Concomitant]
     Active Substance: CLOBAZAM
     Indication: Epilepsy
  7. NEVIOT [Concomitant]
     Indication: Product used for unknown indication
     Dosage: 5CC IN THE MORNING AND 5CC IN THE EVENING
     Route: 048

REACTIONS (5)
  - Epilepsy [Not Recovered/Not Resolved]
  - Gaze palsy [Not Recovered/Not Resolved]
  - Status epilepticus [Not Recovered/Not Resolved]
  - Therapeutic response decreased [Not Recovered/Not Resolved]
  - Muscular weakness [Not Recovered/Not Resolved]

NARRATIVE: CASE EVENT DATE: 20240626
